FAERS Safety Report 25002356 (Version 1)
Quarter: 2025Q1

REPORT INFORMATION
  Report Type: Spontaneous
  Country: US (occurrence: US)
  Receive Date: 20250224
  Receipt Date: 20250224
  Transmission Date: 20250409
  Serious: No
  Sender: ALEXION PHARMACEUTICALS
  Company Number: US-AstraZeneca-CH-00810050A

PATIENT

DRUGS (1)
  1. SEROQUEL [Suspect]
     Active Substance: QUETIAPINE FUMARATE
     Route: 065

REACTIONS (1)
  - Asthma [Unknown]
